FAERS Safety Report 8201782-3 (Version None)
Quarter: 2012Q1

REPORT INFORMATION
  Report Type: 
  Country: None (occurrence: None)
  Receive Date: 20120312
  Receipt Date: 20120301
  Transmission Date: 20120608
  Serious: No
  Sender: FDA-Public Use
  Company Number: US-ROCHE-GNE303636

PATIENT
  Sex: Female
  Weight: 56.296 kg

DRUGS (9)
  1. ALLEGRA [Concomitant]
     Indication: HYPERSENSITIVITY
     Dosage: UNK
  2. OMALIZUMAB [Suspect]
     Indication: ASTHMA
     Dosage: 150 MG, Q4W, LAST DOSE PRIOR TO SAE 04/11/2011
     Route: 058
     Dates: start: 20040114
  3. OMALIZUMAB [Suspect]
     Dosage: 150 MG, Q4W
     Route: 058
  4. VITAMIN AND MINERAL PRENATAL SUPPLEMENT W/ FOLIC ACID CAP [Concomitant]
     Indication: PREGNANCY
     Dosage: UNK
  5. NUVARING [Concomitant]
     Indication: CONTRACEPTION
  6. ZOFRAN [Concomitant]
     Indication: NAUSEA
  7. COMBIVENT [Concomitant]
     Indication: ASTHMA
     Dosage: UNK
  8. ACETAMINOPHEN [Concomitant]
     Indication: HEADACHE
  9. OMALIZUMAB [Suspect]
     Dosage: FOLLOW UP VISIT 12
     Dates: start: 20111104

REACTIONS (1)
  - MATERNAL EXPOSURE DURING PREGNANCY [None]
